FAERS Safety Report 22532829 (Version 1)
Quarter: 2023Q2

REPORT INFORMATION
  Report Type: Spontaneous
  Country: DE (occurrence: DE)
  Receive Date: 20230607
  Receipt Date: 20230607
  Transmission Date: 20230721
  Serious: Yes (Death)
  Sender: FDA-Public Use
  Company Number: DE-Accord-129597

PATIENT
  Sex: Male
  Weight: 75 kg

DRUGS (1)
  1. PEGFILGRASTIM [Suspect]
     Active Substance: PEGFILGRASTIM
     Indication: Breast cancer
     Dosage: UNK
     Route: 065

REACTIONS (2)
  - Abdominal pain [Fatal]
  - Vomiting [Fatal]

NARRATIVE: CASE EVENT DATE: 20190521
